FAERS Safety Report 10328913 (Version 2)
Quarter: 2014Q3

REPORT INFORMATION
  Report Type: Spontaneous
  Country: IT (occurrence: IT)
  Receive Date: 20140721
  Receipt Date: 20140721
  Transmission Date: 20150326
  Serious: Yes (Hospitalization)
  Sender: FDA-Public Use
  Company Number: IT-SA-2014SA051004

PATIENT
  Age: 81 Year
  Sex: Female

DRUGS (8)
  1. LASIX [Interacting]
     Active Substance: FUROSEMIDE
     Indication: HYPERTENSIVE HEART DISEASE
     Dosage: DOSE:2 UNIT(S)
     Route: 048
     Dates: start: 20131001, end: 20140122
  2. CARDIOASPIRIN [Concomitant]
     Active Substance: ASPIRIN
  3. NORVASC [Concomitant]
     Active Substance: AMLODIPINE BESYLATE
  4. ALDACTONE [Suspect]
     Active Substance: SPIRONOLACTONE
     Indication: HYPERTENSIVE HEART DISEASE
     Dosage: DOSE:0.5 UNIT(S)
     Route: 048
     Dates: start: 20131001, end: 20140122
  5. LANTUS [Concomitant]
     Active Substance: INSULIN GLARGINE
  6. LASIX [Interacting]
     Active Substance: FUROSEMIDE
     Indication: HYPERTENSIVE HEART DISEASE
     Dosage: DOSE:0.25 UNIT(S)
     Route: 048
     Dates: start: 20131001, end: 20140122
  7. HUMALOG [Concomitant]
     Active Substance: INSULIN LISPRO
  8. LOBIVON [Concomitant]
     Active Substance: NEBIVOLOL HYDROCHLORIDE

REACTIONS (2)
  - Drug interaction [Unknown]
  - Renal impairment [Recovering/Resolving]

NARRATIVE: CASE EVENT DATE: 20140122
